FAERS Safety Report 7811300-7 (Version None)
Quarter: 2011Q4

REPORT INFORMATION
  Report Type: 
  Country: None (occurrence: None)
  Receive Date: 20111013
  Receipt Date: 20111007
  Transmission Date: 20120403
  Serious: Yes (Hospitalization)
  Sender: FDA-Public Use
  Company Number: US-B.I. PHARMACEUTICALS,INC./RIDGEFIELD-2011-BP-17796BP

PATIENT
  Age: 63 Year
  Sex: Female
  Weight: 95.71 kg

DRUGS (7)
  1. PRADAXA [Suspect]
     Indication: ATRIAL FIBRILLATION
     Dosage: 300 MG
     Dates: start: 20110215
  2. XALATAN [Concomitant]
     Dates: start: 20110228
  3. XANAX [Concomitant]
     Dosage: 0.5 MG
     Dates: start: 20110228
  4. MECLIZINE [Concomitant]
     Dosage: 25 MG
     Dates: start: 20110228
  5. ATENOLOL [Concomitant]
     Dosage: 25 MG
     Dates: start: 20110228
  6. LIPITOR [Concomitant]
     Dosage: 20 MG
     Dates: start: 20110228
  7. TYLENOL W/ CODEINE NO. 3 [Concomitant]
     Dates: start: 20110228

REACTIONS (2)
  - CATHETERISATION CARDIAC [None]
  - PAIN IN EXTREMITY [None]
